FAERS Safety Report 15337331 (Version 3)
Quarter: 2018Q4

REPORT INFORMATION
  Report Type: Report from Study
  Country: PL (occurrence: PL)
  Receive Date: 20180831
  Receipt Date: 20181024
  Transmission Date: 20190204
  Serious: Yes (Hospitalization)
  Sender: FDA-Public Use
  Company Number: PL-ROCHE-2175741

PATIENT
  Age: 74 Year
  Sex: Female
  Weight: 57 kg

DRUGS (9)
  1. ATEZOLIZUMAB. [Suspect]
     Active Substance: ATEZOLIZUMAB
     Indication: NON-SMALL CELL LUNG CANCER
     Dosage: MOST RECENT DOSE PRIOR TO EVENT ONSET : 23/AUG/2018
     Route: 042
     Dates: start: 20180802
  2. BIOTROPIL [Concomitant]
     Route: 048
  3. BISOCARD [Concomitant]
     Active Substance: BISOPROLOL
     Route: 048
  4. ANESTELOC [Concomitant]
     Active Substance: PANTOPRAZOLE SODIUM
     Route: 048
  5. NACL .9% [Concomitant]
     Indication: BLOOD CREATININE INCREASED
     Route: 042
     Dates: start: 20180912, end: 20180912
  6. VICEBROL [Concomitant]
     Active Substance: VINPOCETINE
     Route: 048
  7. FUROSEMIDE. [Concomitant]
     Active Substance: FUROSEMIDE
     Indication: BLOOD CREATININE INCREASED
     Dosage: 1 AMPULE
     Route: 042
     Dates: start: 20180912, end: 20180912
  8. NOLICIN [Concomitant]
     Indication: URINARY TRACT INFECTION
     Route: 048
     Dates: start: 20180823, end: 20180829
  9. LOTENSIN (POLAND) [Concomitant]
     Route: 048

REACTIONS (2)
  - Hypertension [Recovered/Resolved]
  - Chills [Recovered/Resolved]

NARRATIVE: CASE EVENT DATE: 20180823
